FAERS Safety Report 5415496-6 (Version None)
Quarter: 2007Q3

REPORT INFORMATION
  Report Type: 
  Country: None (occurrence: None)
  Receive Date: 20070815
  Receipt Date: 20070803
  Transmission Date: 20080115
  Serious: Yes (Hospitalization)
  Sender: FDA-Public Use
  Company Number: AU-MERCK-0708AUS00174

PATIENT
  Age: 33 Year
  Sex: Female

DRUGS (2)
  1. ALDOMET [Suspect]
     Indication: ESSENTIAL HYPERTENSION
     Route: 048
  2. ATENOLOL [Concomitant]
     Indication: ESSENTIAL HYPERTENSION
     Route: 048

REACTIONS (10)
  - ANXIETY [None]
  - CAESAREAN SECTION [None]
  - CONVULSION [None]
  - ECLAMPSIA [None]
  - HYPOTENSION [None]
  - LABILE BLOOD PRESSURE [None]
  - PHAEOCHROMOCYTOMA [None]
  - PULMONARY OEDEMA [None]
  - RENAL FAILURE ACUTE [None]
  - TACHYCARDIA [None]
